FAERS Safety Report 13151287 (Version 1)
Quarter: 2017Q1

REPORT INFORMATION
  Report Type: Report from Study
  Country: US (occurrence: US)
  Receive Date: 20170125
  Receipt Date: 20170125
  Transmission Date: 20170428
  Serious: Yes (Death, Other)
  Sender: FDA-Public Use
  Company Number: US-GILEAD-2017-0254818

PATIENT
  Age: 83 Year
  Sex: Male

DRUGS (1)
  1. IDELALISIB [Suspect]
     Active Substance: IDELALISIB
     Indication: B-CELL LYMPHOMA RECURRENT
     Dosage: 150 MG, BID
     Route: 048
     Dates: start: 20160827, end: 20160914

REACTIONS (1)
  - Death [Fatal]
